FAERS Safety Report 18260445 (Version 1)
Quarter: 2020Q3

REPORT INFORMATION
  Report Type: Spontaneous
  Country: DE (occurrence: DE)
  Receive Date: 20200914
  Receipt Date: 20200914
  Transmission Date: 20201103
  Serious: Yes (Life-Threatening, Hospitalization, Disabling, Other)
  Sender: FDA-Public Use
  Company Number: DE-TEVA-2020-DE-1825671

PATIENT
  Age: 54 Year
  Sex: Male

DRUGS (2)
  1. RAMIPRIL. [Suspect]
     Active Substance: RAMIPRIL
     Dosage: MANUFACTURER AND DAILY DOSAGE UNKNOWN
  2. VALSARTAN. [Suspect]
     Active Substance: VALSARTAN
     Dosage: MANUFACTURER AND DAILY DOSAGE UNKNOWN

REACTIONS (4)
  - Brain injury [Recovered/Resolved with Sequelae]
  - Angioedema [Recovered/Resolved with Sequelae]
  - Anaphylactic reaction [Recovered/Resolved with Sequelae]
  - Pharyngeal swelling [Unknown]

NARRATIVE: CASE EVENT DATE: 202007
